FAERS Safety Report 8578086-2 (Version None)
Quarter: 2012Q3

REPORT INFORMATION
  Report Type: 
  Country: None (occurrence: None)
  Receive Date: 20120808
  Receipt Date: 20120807
  Transmission Date: 20120928
  Serious: Yes (Death)
  Sender: FDA-Public Use
  Company Number: PHHY2012NL041018

PATIENT
  Sex: Male

DRUGS (5)
  1. TRAMADOL HCL [Concomitant]
     Dosage: 4 DF, DAILY
  2. PREDNISONE [Concomitant]
     Dosage: 10 MG, PER DAY
  3. ZOMETA [Suspect]
     Indication: PROSTATE CANCER METASTATIC
     Dosage: 4MG/100 ML ONCE PER MONTH
     Route: 042
     Dates: start: 20120410
  4. ZOMETA [Suspect]
     Dosage: 4MG/100 ML ONCE PER MONTH
     Route: 042
     Dates: start: 20120419
  5. CALCICHEW D3 [Concomitant]
     Dosage: 1 DF, UNK

REACTIONS (1)
  - DEATH [None]
